FAERS Safety Report 7884618-X (Version None)
Quarter: 2011Q4

REPORT INFORMATION
  Report Type: 
  Country: None (occurrence: None)
  Receive Date: 20111102
  Receipt Date: 20111025
  Transmission Date: 20120403
  Serious: Yes (Hospitalization, Other)
  Sender: FDA-Public Use
  Company Number: US-MERCK-0908USA02150

PATIENT
  Age: 77 Year
  Sex: Female
  Weight: 62 kg

DRUGS (3)
  1. FOSAMAX [Suspect]
     Route: 048
     Dates: start: 20020101, end: 20050101
  2. FOSAMAX [Suspect]
     Route: 048
     Dates: start: 20050701
  3. FOSAMAX [Suspect]
     Indication: OSTEOPENIA
     Route: 048
     Dates: start: 19990901, end: 20020101

REACTIONS (31)
  - FEMUR FRACTURE [None]
  - FRACTURE DELAYED UNION [None]
  - HIP DEFORMITY [None]
  - SCIATICA [None]
  - CATARACT [None]
  - MULTIPLE MYELOMA [None]
  - LYMPHADENOPATHY [None]
  - TENDERNESS [None]
  - HAEMATOCRIT DECREASED [None]
  - PAIN IN EXTREMITY [None]
  - MUSCLE STRAIN [None]
  - BALANCE DISORDER [None]
  - VENTRICULAR EXTRASYSTOLES [None]
  - OSTEOARTHRITIS [None]
  - OEDEMA PERIPHERAL [None]
  - FALL [None]
  - AORTIC VALVE INCOMPETENCE [None]
  - MITRAL VALVE PROLAPSE [None]
  - VENTRICULAR HYPOKINESIA [None]
  - DRUG INTOLERANCE [None]
  - HAEMOGLOBIN DECREASED [None]
  - BACK PAIN [None]
  - GROIN PAIN [None]
  - HYPERLIPIDAEMIA [None]
  - HYPERTENSION [None]
  - BONE LESION [None]
  - HIP FRACTURE [None]
  - ANXIETY [None]
  - ARTHRALGIA [None]
  - ANKLE FRACTURE [None]
  - BONE CALLUS EXCESSIVE [None]
